FAERS Safety Report 25665110 (Version 1)
Quarter: 2025Q3

REPORT INFORMATION
  Report Type: Spontaneous
  Country: US (occurrence: None)
  Receive Date: 20250809
  Receipt Date: 20250809
  Transmission Date: 20251020
  Serious: No
  Sender: FDA-CTU
  Company Number: None

PATIENT
  Age: 34 Year
  Sex: Female
  Weight: 72 kg

DRUGS (8)
  1. .DELTA.8-TETRAHYDROCANNABINOL\HERBALS [Suspect]
     Active Substance: .DELTA.8-TETRAHYDROCANNABINOL\HERBALS
     Indication: Substance use
     Dates: start: 20250807, end: 20250807
  2. Omnipod insulin pump with lyumjev insulin [Concomitant]
  3. Dexcom CGM [Concomitant]
  4. ATORVASTATIN [Concomitant]
     Active Substance: ATORVASTATIN
  5. VENLAFAXINE [Concomitant]
     Active Substance: VENLAFAXINE HYDROCHLORIDE
  6. METHYLPHENIDATE [Concomitant]
     Active Substance: METHYLPHENIDATE
  7. MELATONIN [Concomitant]
     Active Substance: MELATONIN
  8. VITAMIN D [Concomitant]
     Active Substance: VITAMIN D NOS

REACTIONS (5)
  - No reaction on previous exposure to drug [None]
  - Fatigue [None]
  - Feeling abnormal [None]
  - Blood glucose increased [None]
  - Lethargy [None]

NARRATIVE: CASE EVENT DATE: 20250807
